FAERS Safety Report 25205113 (Version 1)
Quarter: 2025Q2

REPORT INFORMATION
  Report Type: Spontaneous
  Country: CN (occurrence: CN)
  Receive Date: 20250416
  Receipt Date: 20250416
  Transmission Date: 20250716
  Serious: Yes (Other)
  Sender: BAXTER
  Company Number: None

PATIENT
  Age: 39 Year
  Sex: Female
  Weight: 75 kg

DRUGS (4)
  1. CYCLOPHOSPHAMIDE [Suspect]
     Active Substance: CYCLOPHOSPHAMIDE
     Indication: Breast cancer female
     Dosage: 1.100000 G, QD, INJECTION
     Route: 041
     Dates: start: 20250318, end: 20250318
  2. SODIUM CHLORIDE [Suspect]
     Active Substance: SODIUM CHLORIDE
     Dosage: 50 ML, QD, VEHICLE 0.9% SODIUM CHLORIDE INJECTION, IVGTT, D1
     Route: 041
     Dates: start: 20250318, end: 20250318
  3. DEXTROSE [Suspect]
     Active Substance: DEXTROSE MONOHYDRATE
     Dosage: 750 ML, QD, VEHICLE 5% GLUCOSE INJECTION, IVGTT, D1
     Route: 041
     Dates: start: 20250318, end: 20250318
  4. DOXORUBICIN HYDROCHLORIDE [Suspect]
     Active Substance: DOXORUBICIN HYDROCHLORIDE
     Indication: Breast cancer female
     Dosage: 60.00000 MG, QD, PREPARED BY SELF
     Route: 041
     Dates: start: 20250318, end: 20250318

REACTIONS (1)
  - Leukopenia [Unknown]

NARRATIVE: CASE EVENT DATE: 20250407
